FAERS Safety Report 8524953-5 (Version None)
Quarter: 2012Q3

REPORT INFORMATION
  Report Type: 
  Country: None (occurrence: None)
  Receive Date: 20120720
  Receipt Date: 20120711
  Transmission Date: 20120928
  Serious: Yes (Hospitalization, Other)
  Sender: FDA-Public Use
  Company Number: JP-AMGEN-JPNCT2012045069

PATIENT
  Age: 63 Year
  Sex: Male
  Weight: 53 kg

DRUGS (14)
  1. ASPIRIN [Concomitant]
     Dosage: UNCERTAINTY
     Route: 048
  2. AVAPRO [Concomitant]
     Dosage: UNCERTAINTY
     Route: 048
  3. CARBADOGEN [Concomitant]
     Dosage: UNCERTAINTY
     Route: 048
  4. NOVORAPID [Concomitant]
     Dosage: UNCERTAINTY
     Route: 042
  5. DARBEPOETIN ALFA - KHK [Suspect]
     Indication: NEPHROGENIC ANAEMIA
     Dosage: 30 MG, Q2WK
     Dates: start: 20101005
  6. ADALAT CC [Concomitant]
     Dosage: UNCERTAINTY
     Route: 048
  7. TRICHLORMETHIAZIDE [Concomitant]
     Dosage: UNCERTAINTY
     Route: 048
  8. LASIX [Concomitant]
     Dosage: UNCERTAINTY
     Route: 048
  9. STOGAR [Concomitant]
     Dosage: UNCERTAINTY
     Route: 048
  10. SENNOSIDE [Concomitant]
     Dosage: UNCERTAINTY
     Route: 048
  11. ISOSORBIDE DINITRATE [Concomitant]
     Dosage: UNCERTAINTY
     Route: 048
  12. FRANDOL S [Concomitant]
     Dosage: UNCERTAINTY
     Route: 061
  13. PRAVASTATIN [Concomitant]
     Dosage: UNCERTAINTY
     Route: 048
  14. AMOBAN [Concomitant]
     Dosage: UNCERTAINTY
     Route: 048

REACTIONS (3)
  - VITREOUS HAEMORRHAGE [None]
  - CARDIAC FAILURE CONGESTIVE [None]
  - DIABETIC GANGRENE [None]
